FAERS Safety Report 21359226 (Version 3)
Quarter: 2022Q3

REPORT INFORMATION
  Report Type: Spontaneous
  Country: US (occurrence: US)
  Receive Date: 20220921
  Receipt Date: 20220929
  Transmission Date: 20221026
  Serious: No
  Sender: FDA-Public Use
  Company Number: US-BRISTOL-MYERS SQUIBB COMPANY-2022-109209

PATIENT
  Age: 88 Year
  Sex: Female

DRUGS (1)
  1. POMALYST [Suspect]
     Active Substance: POMALIDOMIDE
     Indication: Weight decreased
     Dosage: FREQ: TAKE 1 CAPSULE BY MOUTH EVERY MORNING BEFORE BREAKFAST ON DAYS 1-21 OF EACH 28 DAY CYCLE
     Route: 048

REACTIONS (1)
  - Intentional product use issue [Unknown]
